FAERS Safety Report 18561002 (Version 3)
Quarter: 2020Q4

REPORT INFORMATION
  Report Type: Spontaneous
  Country: JP (occurrence: JP)
  Receive Date: 20201130
  Receipt Date: 20201223
  Transmission Date: 20210114
  Serious: No
  Sender: FDA-Public Use
  Company Number: JP-TAKEDA-2020TUS053983

PATIENT
  Age: 54 Year
  Sex: Male

DRUGS (2)
  1. LOXONIN [Concomitant]
     Active Substance: LOXOPROFEN SODIUM
     Indication: GOUT
     Dosage: 60 MILLIGRAM, TID
     Route: 048
     Dates: start: 20200911, end: 20201029
  2. FEBURIC [Suspect]
     Active Substance: FEBUXOSTAT
     Indication: GOUT
     Dosage: 10 MILLIGRAM, QD
     Route: 048
     Dates: start: 20201017, end: 20201104

REACTIONS (1)
  - Liver function test increased [Recovering/Resolving]

NARRATIVE: CASE EVENT DATE: 20201104
